FAERS Safety Report 13241166 (Version 2)
Quarter: 2017Q1

REPORT INFORMATION
  Report Type: Spontaneous
  Country: US (occurrence: US)
  Receive Date: 20170216
  Receipt Date: 20170221
  Transmission Date: 20170428
  Serious: Yes (Hospitalization, Other)
  Sender: FDA-Public Use
  Company Number: US-PFIZER INC-2016385360

PATIENT
  Age: 66 Year
  Sex: Female
  Weight: 63.5 kg

DRUGS (4)
  1. FASLODEX [Concomitant]
     Active Substance: FULVESTRANT
     Dosage: UNK UNK, MONTHLY (ONCE A MONTH INJECTION)
  2. ZANTAC [Concomitant]
     Active Substance: RANITIDINE HYDROCHLORIDE
     Indication: GASTROOESOPHAGEAL REFLUX DISEASE
     Dosage: UNK
  3. IBRANCE [Suspect]
     Active Substance: PALBOCICLIB
     Indication: BREAST CANCER METASTATIC
     Dosage: (ONCE A DAY ON 21 DAYS AND OFF 7 DAYS)125 MG, CYCLIC
     Dates: start: 2016
  4. ALKA SELTZER PLUS NIGHT COLD FORMUL. [Concomitant]
     Indication: INSOMNIA
     Dosage: UNK UNK, AS NEEDED

REACTIONS (7)
  - Neoplasm progression [Unknown]
  - Dyspnoea [Unknown]
  - Pneumothorax [Unknown]
  - Pneumonia [Recovered/Resolved]
  - Pyrexia [Recovered/Resolved]
  - Hypoxia [Unknown]
  - Secretion discharge [Recovered/Resolved]

NARRATIVE: CASE EVENT DATE: 201612
